FAERS Safety Report 5272660-7 (Version None)
Quarter: 2007Q1

REPORT INFORMATION
  Report Type: 
  Country: None (occurrence: None)
  Receive Date: 20061219
  Receipt Date: 20060913
  Transmission Date: 20070707
  Serious: Yes (Other)
  Sender: FDA-Public Use
  Company Number: US-JNJFOC-20060904343

PATIENT
  Age: 37 Year
  Sex: Female
  Weight: 61.2356 kg

DRUGS (1)
  1. ORTHO EVRA [Suspect]
     Indication: PREMENSTRUAL SYNDROME
     Dosage: TRANSDERMAL
     Route: 062
     Dates: start: 20050201

REACTIONS (2)
  - CHEST PAIN [None]
  - DEEP VEIN THROMBOSIS [None]
